FAERS Safety Report 4900857-1 (Version None)
Quarter: 2006Q1

REPORT INFORMATION
  Report Type: 
  Country: None (occurrence: None)
  Receive Date: 20060113
  Receipt Date: 20051201
  Transmission Date: 20060701
  Serious: No
  Sender: FDA-Public Use
  Company Number: 2005SP004229

PATIENT
  Age: 65 Year
  Sex: Male
  Weight: 86.1834 kg

DRUGS (5)
  1. LUNESTA [Suspect]
     Indication: INSOMNIA
     Dosage: 3 MG; HS; ORAL
     Route: 048
     Dates: start: 20051006
  2. ALINIA [Concomitant]
  3. PROMETHAZINE [Concomitant]
  4. LOMOTIL [Concomitant]
  5. PREDNISONE [Concomitant]

REACTIONS (1)
  - DYSGEUSIA [None]
